FAERS Safety Report 7930465-X (Version None)
Quarter: 2011Q4

REPORT INFORMATION
  Report Type: 
  Country: None (occurrence: None)
  Receive Date: 20111121
  Receipt Date: 20111107
  Transmission Date: 20120403
  Serious: Yes (Life-Threatening, Hospitalization)
  Sender: FDA-Public Use
  Company Number: US-ROCHE-1012161

PATIENT

DRUGS (5)
  1. CARBOPLATIN [Suspect]
     Indication: BREAST CANCER METASTATIC
     Dosage: OVER 1 HOUR ON DAYS 1, 8, AND 15, 2 AUC
     Route: 042
  2. HERCEPTIN [Suspect]
     Indication: BREAST CANCER METASTATIC
     Dosage: CYCLES 1-6 (CYCLE = 28 DAYS),OVER 90 MIN ON DAY 1, WEEK 1 ONLY
     Route: 042
     Dates: start: 20050603
  3. HERCEPTIN [Suspect]
     Dosage: OVER 90 MIN ON DAY 1, MAINTENANCE THERAPY:  CYCLES 7+ (CYCLE = 21 DAYS):
     Route: 042
  4. IXABEPILONE [Suspect]
     Indication: BREAST CANCER METASTATIC
     Dosage: OVER 1 HOUR ON DAYS 1, 8, AND 15
     Route: 042
  5. HERCEPTIN [Suspect]
     Dosage: OVER 30 MIN ON DAY 1, 8, 15, AND 22 STARTING ON WEEK 2
     Route: 042

REACTIONS (7)
  - HAEMOGLOBIN DECREASED [None]
  - STERNAL FRACTURE [None]
  - FRACTURE [None]
  - RIB FRACTURE [None]
  - HAEMOTHORAX [None]
  - ROAD TRAFFIC ACCIDENT [None]
  - ANAEMIA [None]
